FAERS Safety Report 12440259 (Version 1)
Quarter: 2016Q2

REPORT INFORMATION
  Report Type: Spontaneous
  Country: US (occurrence: US)
  Receive Date: 20160606
  Receipt Date: 20160606
  Transmission Date: 20160815
  Serious: No
  Sender: FDA-Public Use
  Company Number: US-AMGEN-USASP2016003890

PATIENT
  Age: 33 Year
  Sex: Female
  Weight: 65.76 kg

DRUGS (6)
  1. PROCRIT [Suspect]
     Active Substance: ERYTHROPOIETIN
     Indication: BLOOD DISORDER
     Dosage: 20,000 UNIT, QWK
     Route: 058
     Dates: start: 2013
  2. NADOLOL. [Concomitant]
     Active Substance: NADOLOL
     Indication: ARRHYTHMIA
     Dosage: UNK
  3. LO LOESTRIN FE [Concomitant]
     Active Substance: ETHINYL ESTRADIOL\NORETHINDRONE ACETATE
     Indication: CONTRACEPTION
     Dosage: UNK
  4. PROCRIT [Suspect]
     Active Substance: ERYTHROPOIETIN
     Dosage: UNK, / EVERY OTHER WEEK
     Route: 058
  5. LUNESTA [Concomitant]
     Active Substance: ESZOPICLONE
     Indication: SLEEP DISORDER
     Dosage: UNK
  6. LUNESTA [Concomitant]
     Active Substance: ESZOPICLONE
     Indication: RESTLESS LEGS SYNDROME

REACTIONS (2)
  - Wrong technique in product usage process [Unknown]
  - Incorrect product storage [Unknown]

NARRATIVE: CASE EVENT DATE: 20160112
